FAERS Safety Report 6044485-6 (Version None)
Quarter: 2009Q1

REPORT INFORMATION
  Report Type: 
  Country: None (occurrence: None)
  Receive Date: 20090114
  Receipt Date: 20090114
  Transmission Date: 20090719
  Serious: Yes (Disabling)
  Sender: FDA-Public Use
  Company Number: None

PATIENT
  Age: 45 Year
  Sex: Female
  Weight: 66.22 kg

DRUGS (2)
  1. AVELOX [Suspect]
     Indication: ASTHMA
     Dosage: 400 MG DAILY IV
     Route: 042
  2. AVELOX [Suspect]
     Indication: BRONCHITIS
     Dosage: 400 MG DAILY IV
     Route: 042

REACTIONS (2)
  - EYE SWELLING [None]
  - RASH MACULO-PAPULAR [None]
